FAERS Safety Report 19367094 (Version 1)
Quarter: 2021Q2

REPORT INFORMATION
  Report Type: Spontaneous
  Country: US (occurrence: US)
  Receive Date: 20210603
  Receipt Date: 20210603
  Transmission Date: 20210717
  Serious: No
  Sender: FDA-Public Use
  Company Number: US-CURIUM-2021000411

PATIENT
  Age: 5 Year
  Sex: Male
  Weight: 28.8 kg

DRUGS (7)
  1. BUDESONIDE 0.25 MG/2 ML INHALATION SUSPENSION [Concomitant]
     Dosage: 0.25 MG = 2 ML, NEB, 2 TIMES A DAY
     Route: 065
  2. GENERATOR (NOT CURIUM) [Concomitant]
     Route: 051
     Dates: start: 20210428, end: 20210428
  3. FLONASE [Concomitant]
     Active Substance: FLUTICASONE PROPIONATE
     Route: 045
  4. TECHNESCAN MAG3 [Suspect]
     Active Substance: TECHNETIUM TC-99M TIATIDE
     Route: 051
     Dates: start: 20210428, end: 20210428
  5. ALBUTEROL. [Concomitant]
     Active Substance: ALBUTEROL
     Route: 065
  6. LASIX [Concomitant]
     Active Substance: FUROSEMIDE
     Route: 051
     Dates: start: 20210428, end: 20210428
  7. BACTRIM [Concomitant]
     Active Substance: SULFAMETHOXAZOLE\TRIMETHOPRIM
     Dosage: EVERY 12H
     Route: 048

REACTIONS (1)
  - Renal scan abnormal [Recovered/Resolved]

NARRATIVE: CASE EVENT DATE: 20210428
